FAERS Safety Report 15586499 (Version 1)
Quarter: 2018Q4

REPORT INFORMATION
  Report Type: Spontaneous
  Country: US (occurrence: US)
  Receive Date: 20181105
  Receipt Date: 20181105
  Transmission Date: 20190205
  Serious: No
  Sender: FDA-Public Use
  Company Number: US-GLAXOSMITHKLINE-US2018195950

PATIENT
  Age: 76 Year
  Sex: Female

DRUGS (3)
  1. PREVACID 24 HR [Suspect]
     Active Substance: LANSOPRAZOLE
     Dosage: 15 MG, 1D
  2. PREVACID 24 HR [Suspect]
     Active Substance: LANSOPRAZOLE
     Indication: DYSPEPSIA
     Dosage: 30 MG, 1D
     Route: 048
  3. TUMS EX [Suspect]
     Active Substance: CALCIUM CARBONATE
     Indication: DYSPEPSIA
     Dosage: UNK
     Route: 048
     Dates: start: 20181019

REACTIONS (4)
  - Drug resistance [Unknown]
  - Off label use [Unknown]
  - Drug effect incomplete [Unknown]
  - Overdose [Unknown]
